FAERS Safety Report 16704027 (Version 1)
Quarter: 2019Q3

REPORT INFORMATION
  Report Type: Spontaneous
  Country: US (occurrence: US)
  Receive Date: 20190628
  Receipt Date: 20190628
  Transmission Date: 20191004
  Serious: Yes (Hospitalization)
  Sender: FDA-Public Use
  Company Number: None

PATIENT
  Age: 42 Year
  Sex: Female

DRUGS (1)
  1. HUMIRA [Suspect]
     Active Substance: ADALIMUMAB
     Indication: RHEUMATOID ARTHRITIS
     Dosage: ?          OTHER DOSE:1 PEN;OTHER FREQUENCY:Q 2WKS;?
     Route: 058
     Dates: start: 20190516

REACTIONS (2)
  - Therapy cessation [None]
  - Surgery [None]

NARRATIVE: CASE EVENT DATE: 20190627
